FAERS Safety Report 13263101 (Version 2)
Quarter: 2017Q1

REPORT INFORMATION
  Report Type: Report from Study
  Country: US (occurrence: US)
  Receive Date: 20170223
  Receipt Date: 20170307
  Transmission Date: 20170428
  Serious: Yes (Death)
  Sender: FDA-Public Use
  Company Number: US-ADIENNEP-2017AD000022

PATIENT

DRUGS (2)
  1. TEPADINA [Suspect]
     Active Substance: THIOTEPA
     Indication: HAEMATOLOGICAL MALIGNANCY
     Dosage: 5 MG/M2 DAILY
     Route: 042
  2. FLUDARABINE [Suspect]
     Active Substance: FLUDARABINE PHOSPHATE
     Indication: HAEMATOLOGICAL MALIGNANCY
     Dosage: 40 MG/M2 DAILY
     Route: 042

REACTIONS (1)
  - Death [Fatal]
